FAERS Safety Report 5625202-8 (Version None)
Quarter: 2008Q1

REPORT INFORMATION
  Report Type: 
  Country: None (occurrence: None)
  Receive Date: 20080131
  Receipt Date: 20080118
  Transmission Date: 20080703
  Serious: Yes (Life-Threatening)
  Sender: FDA-Public Use
  Company Number: THYM-1000462

PATIENT
  Age: 62 Year
  Sex: Female

DRUGS (5)
  1. THYMOGLOBULIN [Suspect]
     Indication: IMMUNOSUPPRESSION
     Dosage: 0.5 MG/KG, QD; INTRAVENOUS
     Route: 042
     Dates: start: 20071112, end: 20071112
  2. PROPOFOL [Concomitant]
  3. SIMULECT [Concomitant]
  4. MEROPENEM (MEROPENEM) [Concomitant]
  5. SOLU-MEDROL [Concomitant]

REACTIONS (3)
  - ATRIAL FIBRILLATION [None]
  - SHOCK [None]
  - SUBENDOCARDIAL ISCHAEMIA [None]
